FAERS Safety Report 7900215-1 (Version None)
Quarter: 2011Q4

REPORT INFORMATION
  Report Type: 
  Country: None (occurrence: None)
  Receive Date: 20111101
  Receipt Date: 20110718
  Transmission Date: 20120403
  Serious: Yes (Other)
  Sender: FDA-Public Use
  Company Number: 288500USA

PATIENT
  Sex: Male

DRUGS (1)
  1. CLONAZEPAM [Suspect]
     Dosage: (0.5 MG)

REACTIONS (6)
  - DRUG WITHDRAWAL SYNDROME [None]
  - TIC [None]
  - FEELING ABNORMAL [None]
  - PARAESTHESIA [None]
  - DRUG INEFFECTIVE [None]
  - MUSCLE SPASMS [None]
